FAERS Safety Report 6436000-X (Version None)
Quarter: 2009Q4

REPORT INFORMATION
  Report Type: 
  Country: None (occurrence: None)
  Receive Date: 20091110
  Receipt Date: 20091110
  Transmission Date: 20100525
  Serious: No
  Sender: FDA-Public Use
  Company Number: None

PATIENT
  Age: 51 Year
  Sex: Male
  Weight: 145.151 kg

DRUGS (1)
  1. CLONIDINE [Suspect]
     Indication: HYPERTENSION
     Dosage: 0.3MG/DAY EVERY WEEK TRANSDERMAL, INDEFINATELY
     Route: 062
     Dates: start: 20090901, end: 20091109

REACTIONS (1)
  - PRODUCT QUALITY ISSUE [None]
